FAERS Safety Report 4443647-9 (Version None)
Quarter: 2004Q3

REPORT INFORMATION
  Report Type: 
  Country: None (occurrence: None)
  Receive Date: 20040903
  Receipt Date: 20040903
  Transmission Date: 20050211
  Serious: Yes (Life-Threatening, Hospitalization)
  Sender: FDA-Public Use
  Company Number: None

PATIENT
  Age: 27 Year
  Sex: Female
  Weight: 79.3795 kg

DRUGS (1)
  1. IMITREX [Suspect]
     Indication: MIGRAINE
     Dosage: 1 ORAL
     Route: 048

REACTIONS (13)
  - AMNESIA [None]
  - CARDIAC FAILURE [None]
  - CHEST PAIN [None]
  - EOSINOPHILIA [None]
  - FATIGUE [None]
  - FEELING ABNORMAL [None]
  - HAEMORRHAGE [None]
  - HEART RATE INCREASED [None]
  - HYPERTROPHIC CARDIOMYOPATHY [None]
  - HYPOTENSION [None]
  - THROMBOSIS [None]
  - VENTRICULAR DYSFUNCTION [None]
  - VOMITING [None]
